FAERS Safety Report 11719683 (Version 1)
Quarter: 2015Q4

REPORT INFORMATION
  Report Type: Spontaneous
  Country: US (occurrence: US)
  Receive Date: 20151110
  Receipt Date: 20151110
  Transmission Date: 20160304
  Serious: No
  Sender: FDA-Public Use
  Company Number: US-IPCA LABORATORIES LIMITED-IPC201409-000472

PATIENT
  Age: 79 Year
  Sex: Male
  Weight: 74.84 kg

DRUGS (16)
  1. COUMADIN [Concomitant]
     Active Substance: WARFARIN SODIUM
     Dates: start: 20140827, end: 20140828
  2. AMBIEN [Concomitant]
     Active Substance: ZOLPIDEM TARTRATE
  3. FUROSEMIDE. [Suspect]
     Active Substance: FUROSEMIDE
     Dates: start: 20140601, end: 201408
  4. ADVAIR HFA [Concomitant]
     Active Substance: FLUTICASONE PROPIONATE\SALMETEROL XINAFOATE
  5. POTASSIUM [Concomitant]
     Active Substance: POTASSIUM
  6. COUMADIN [Concomitant]
     Active Substance: WARFARIN SODIUM
     Dates: start: 20140829
  7. BENAZEPRIL [Concomitant]
     Active Substance: BENAZEPRIL HYDROCHLORIDE
  8. CYMBALTA [Concomitant]
     Active Substance: DULOXETINE HYDROCHLORIDE
  9. FUROSEMIDE. [Suspect]
     Active Substance: FUROSEMIDE
     Indication: CARDIAC FAILURE CONGESTIVE
     Route: 048
     Dates: start: 201404, end: 201408
  10. DUONEB [Concomitant]
     Active Substance: ALBUTEROL SULFATE\IPRATROPIUM BROMIDE
     Indication: DYSPNOEA
  11. GABAPENTIN. [Concomitant]
     Active Substance: GABAPENTIN
  12. DIGOXIN. [Concomitant]
     Active Substance: DIGOXIN
     Dates: end: 20140827
  13. TYLENOL [Concomitant]
     Active Substance: ACETAMINOPHEN
     Dates: start: 20140828
  14. CALCIUM [Concomitant]
     Active Substance: CALCIUM
  15. VITAMIN D4 [Concomitant]
  16. LEVAQUIN [Concomitant]
     Active Substance: LEVOFLOXACIN
     Indication: PNEUMONIA

REACTIONS (1)
  - Drug ineffective [Unknown]

NARRATIVE: CASE EVENT DATE: 20140501
